FAERS Safety Report 9044752 (Version 1)
Quarter: 2013Q1

REPORT INFORMATION
  Report Type: Spontaneous
  Country: US (occurrence: US)
  Receive Date: 20130130
  Receipt Date: 20130130
  Transmission Date: 20140127
  Serious: No
  Sender: FDA-Public Use
  Company Number: US-ABBOTT-12P-163-0928540-00

PATIENT
  Age: 61 None
  Sex: Male

DRUGS (17)
  1. HUMIRA 40 MG/0.8 ML PEN [Suspect]
     Indication: CROHN^S DISEASE
     Route: 058
     Dates: start: 201105, end: 201105
  2. HUMIRA 40 MG/0.8 ML PEN [Suspect]
     Route: 058
     Dates: start: 201105, end: 201105
  3. HUMIRA 40 MG/0.8 ML PEN [Suspect]
     Route: 058
     Dates: start: 201106
  4. LISINOPRIL [Suspect]
     Indication: HYPERTENSION
     Dosage: 40 MG ONCE A DAY
     Dates: end: 20120806
  5. METOPROLOL [Concomitant]
     Indication: HYPERTENSION
     Dosage: 100 MG ONCE A DAY
  6. VERAPAMIL [Concomitant]
     Indication: HYPERTENSION
     Dosage: 180 MG ONCE A DAY
  7. SIMVASTATIN [Concomitant]
     Indication: CORONARY ARTERY OCCLUSION
     Dosage: 40 MG ONCE DAILY
  8. EFFEXOR [Concomitant]
     Indication: DEPRESSION
     Dosage: 75 MG
  9. HUMULIN N [Concomitant]
     Indication: PRODUCT USED FOR UNKNOWN INDICATION
  10. FOLIC ACID [Concomitant]
     Indication: PRODUCT USED FOR UNKNOWN INDICATION
     Dosage: 400 MG ONCE DAILY
  11. BABY ASPIRIN [Concomitant]
     Indication: PRODUCT USED FOR UNKNOWN INDICATION
     Dosage: 81 MG ONCE DAILY
  12. KLOR-CON [Concomitant]
     Indication: PRODUCT USED FOR UNKNOWN INDICATION
  13. MULTIVITAMIN [Concomitant]
     Indication: PRODUCT USED FOR UNKNOWN INDICATION
  14. BIPAP MACHINE [Concomitant]
     Indication: PRODUCT USED FOR UNKNOWN INDICATION
     Dosage: FOR SLEEP EVERY NIGHT
  15. METHOTREXATE [Concomitant]
     Indication: PRODUCT USED FOR UNKNOWN INDICATION
     Dosage: 2.5 MG: 8 PILLS EVERY SUNDAY
  16. KLONOPIN [Concomitant]
     Indication: PRODUCT USED FOR UNKNOWN INDICATION
     Dosage: 1 MG TWICE A DAY
  17. POTASSIUM CHLORIDE [Concomitant]
     Indication: PRODUCT USED FOR UNKNOWN INDICATION
     Dosage: 20 MG ONCE DAILY

REACTIONS (14)
  - Mucous stools [Not Recovered/Not Resolved]
  - Crohn^s disease [Not Recovered/Not Resolved]
  - Haematochezia [Not Recovered/Not Resolved]
  - Diarrhoea [Not Recovered/Not Resolved]
  - Campylobacter gastroenteritis [Unknown]
  - Drug ineffective [Unknown]
  - Bacterial infection [Unknown]
  - Crohn^s disease [Unknown]
  - Cough [Unknown]
  - Muscle spasms [Unknown]
  - Dyspnoea [Unknown]
  - Sputum discoloured [Unknown]
  - Sputum discoloured [Unknown]
  - Crohn^s disease [Unknown]
